FAERS Safety Report 4711625-8 (Version None)
Quarter: 2005Q2

REPORT INFORMATION
  Report Type: 
  Country: None (occurrence: None)
  Receive Date: 20050629
  Receipt Date: 20050324
  Transmission Date: 20051028
  Serious: No
  Sender: FDA-Public Use
  Company Number: 05P-163-0290028-00

PATIENT
  Age: 71 Year
  Sex: Female
  Weight: 97.0698 kg

DRUGS (10)
  1. HUMIRA [Suspect]
     Indication: RHEUMATOID ARTHRITIS
     Dosage: 40 MG, 1 IN 2 WK, SUBCUTANEOUS
     Route: 058
     Dates: start: 20041207, end: 20050211
  2. PREDNISONE [Concomitant]
  3. AZATHIOPRINE [Concomitant]
  4. ALENDRONATE SODIUM [Concomitant]
  5. FOLIC ACID [Concomitant]
  6. METHOTREXATE SODIUM [Concomitant]
  7. ZOCOR [Concomitant]
  8. ACTOS [Concomitant]
  9. AMITRIPTYLINE HCL [Concomitant]
  10. GLIBENCLAMIDE [Concomitant]

REACTIONS (3)
  - ERYTHEMA [None]
  - PRURITUS [None]
  - RASH [None]
